FAERS Safety Report 4403546-5 (Version None)
Quarter: 2004Q3

REPORT INFORMATION
  Report Type: 
  Country: None (occurrence: None)
  Receive Date: 20040721
  Receipt Date: 20030724
  Transmission Date: 20050211
  Serious: Yes (Death)
  Sender: FDA-Public Use
  Company Number: PHBS2003JP07763

PATIENT
  Sex: Male

DRUGS (3)
  1. STARSIS #AJ [Suspect]
     Indication: DIABETES MELLITUS
     Dosage: 60 MG/DAY
     Route: 048
     Dates: start: 20020330, end: 20030712
  2. BEZATOL - SLOW RELEASE [Suspect]
     Indication: HYPERLIPIDAEMIA
     Dosage: 400 MG/DAY
     Route: 048
     Dates: start: 19990403, end: 20030712
  3. ADALAT [Suspect]
     Indication: HYPERTENSION
     Dosage: 40 MG/DAY
     Route: 048
     Dates: start: 19990403, end: 20030712

REACTIONS (2)
  - ACUTE MYOCARDIAL INFARCTION [None]
  - CEREBRAL INFARCTION [None]
